FAERS Safety Report 23108807 (Version 1)
Quarter: 2023Q4

REPORT INFORMATION
  Report Type: Spontaneous
  Country: US (occurrence: US)
  Receive Date: 20231026
  Receipt Date: 20231026
  Transmission Date: 20240110
  Serious: No
  Sender: FDA-Public Use
  Company Number: US-SA-SAC20231025000095

PATIENT

DRUGS (1)
  1. DUPIXENT [Suspect]
     Active Substance: DUPILUMAB
     Dosage: LOADING DOSE
     Route: 065
     Dates: start: 20231004, end: 20231004

REACTIONS (1)
  - Exposure via breast milk [Unknown]

NARRATIVE: CASE EVENT DATE: 20231001
